FAERS Safety Report 21595792 (Version 2)
Quarter: 2022Q4

REPORT INFORMATION
  Report Type: Spontaneous
  Country: CA (occurrence: CA)
  Receive Date: 20221115
  Receipt Date: 20221124
  Transmission Date: 20230113
  Serious: No
  Sender: FDA-Public Use
  Company Number: CA-ASTELLAS-2022US040349

PATIENT
  Age: 79 Year
  Sex: Male

DRUGS (3)
  1. MYRBETRIQ [Suspect]
     Active Substance: MIRABEGRON
     Indication: Hypotonic urinary bladder
     Route: 048
     Dates: start: 20220915
  2. DUTASTERIDE [Concomitant]
     Active Substance: DUTASTERIDE
     Indication: Hypotonic urinary bladder
     Dosage: UNK UNK, UNKNOWN FREQ.
     Route: 065
  3. RIVASTIGMINE [Concomitant]
     Active Substance: RIVASTIGMINE
     Indication: Dementia
     Dosage: UNK UNK, UNKNOWN FREQ.
     Route: 065

REACTIONS (1)
  - Off label use [Not Recovered/Not Resolved]

NARRATIVE: CASE EVENT DATE: 20220915
